FAERS Safety Report 7512796-0 (Version None)
Quarter: 2011Q2

REPORT INFORMATION
  Report Type: 
  Country: None (occurrence: None)
  Receive Date: 20110531
  Receipt Date: 20110520
  Transmission Date: 20111010
  Serious: Yes (Hospitalization)
  Sender: FDA-Public Use
  Company Number: B0720686A

PATIENT
  Age: 30 Year
  Sex: Female

DRUGS (2)
  1. CELESTONE [Suspect]
     Dosage: 12MG PER DAY
     Route: 065
     Dates: start: 20101228, end: 20101229
  2. ALBUTEROL [Suspect]
     Dosage: 10MG SEE DOSAGE TEXT
     Route: 042
     Dates: start: 20101228, end: 20101228

REACTIONS (9)
  - HYPOXIA [None]
  - LUNG DISORDER [None]
  - TACHYCARDIA [None]
  - DRUG EXPOSURE DURING PREGNANCY [None]
  - ACUTE PULMONARY OEDEMA [None]
  - CARDIAC FAILURE [None]
  - LIVE BIRTH [None]
  - DYSPNOEA [None]
  - PYREXIA [None]
